FAERS Safety Report 8104705-0 (Version None)
Quarter: 2012Q1

REPORT INFORMATION
  Report Type: 
  Country: None (occurrence: None)
  Receive Date: 20120201
  Receipt Date: 20120124
  Transmission Date: 20120608
  Serious: Yes (Death, Hospitalization, Other)
  Sender: FDA-Public Use
  Company Number: BE-ABBOTT-11P-013-0870156-00

PATIENT
  Sex: Female

DRUGS (6)
  1. HUMIRA [Suspect]
     Indication: RHEUMATOID ARTHRITIS
     Dates: start: 20090930
  2. AMLODIPINE [Concomitant]
     Indication: HYPERTENSION
     Route: 048
  3. BISOPROLOL [Concomitant]
     Indication: HYPERTENSION
     Route: 048
  4. FOLIC ACID [Concomitant]
     Indication: RHEUMATOID ARTHRITIS
     Route: 048
     Dates: start: 20010101, end: 20101205
  5. ASPIRIN [Concomitant]
     Indication: HYPERTENSION
  6. METHOTREXATE [Concomitant]
     Indication: RHEUMATOID ARTHRITIS
     Dosage: 10MG/WEEK
     Route: 048
     Dates: start: 20010101, end: 20101201

REACTIONS (8)
  - SHOCK [None]
  - INJURY [None]
  - SPLENIC RUPTURE [None]
  - MULTIPLE FRACTURES [None]
  - HAEMODYNAMIC INSTABILITY [None]
  - HAEMORRHAGE [None]
  - FALL [None]
  - ACUTE ABDOMEN [None]
